FAERS Safety Report 5776424-7 (Version None)
Quarter: 2008Q2

REPORT INFORMATION
  Report Type: 
  Country: None (occurrence: None)
  Receive Date: 20080618
  Receipt Date: 20080613
  Transmission Date: 20081010
  Serious: Yes (Death)
  Sender: FDA-Public Use
  Company Number: PHHY2008US09151

PATIENT
  Sex: Male
  Weight: 168 kg

DRUGS (1)
  1. EXJADE [Suspect]
     Indication: IRON OVERLOAD
     Dosage: 1500 MG, QD
     Route: 048
     Dates: start: 20080118

REACTIONS (4)
  - APLASIA PURE RED CELL [None]
  - CARDIAC FAILURE CONGESTIVE [None]
  - IRON OVERLOAD [None]
  - TRANSFUSION [None]
